FAERS Safety Report 9500791 (Version 1)
Quarter: 2013Q1

REPORT INFORMATION
  Report Type: Spontaneous
  Country: US (occurrence: None)
  Receive Date: 20130107
  Receipt Date: 20130107
  Transmission Date: 20140127
  Serious: No
  Sender: FDA-Public Use
  Company Number: PHHY2011US117427

PATIENT
  Age: 51 Year
  Sex: Female
  Weight: 93.2 kg

DRUGS (14)
  1. GILENYA (FTY) CAPSULE, 0.5MG [Suspect]
     Indication: RELAPSING-REMITTING MULTIPLE SCLEROSIS
     Route: 048
     Dates: start: 201103
  2. CALCIUM (CALCIUM) [Concomitant]
  3. MAGNESIUM (MAGNESIUM) [Concomitant]
  4. PROVIGIL (MODAFINIL) 100MG [Concomitant]
  5. FLOXMAX (TAMSULOSIN HYDROCHLORIDE) [Concomitant]
  6. VITAMIN D (ERGOCALCIFEROL) [Concomitant]
  7. LEXAPRO (ESCITALOPRAM OXALATE) TABLET 20MG [Concomitant]
  8. ROPINIROLE (ROPINIROLE) [Concomitant]
  9. CIPRO (CIPROFLOXACIN HYDROCHLORIDE) [Concomitant]
  10. MIRAPEX (PRAMIPEXOLE DIHYDROCHLORIDE) [Concomitant]
  11. LIORESAL (BACLOFEN) [Concomitant]
  12. COENZYME Q10 (UBIDECARENONE) CAPSULE [Concomitant]
  13. VITAMIN D3 (COLECALCIFEROL) TABLET, 1000 U [Concomitant]
  14. NUVIGIL (ARMODAFINIL) TABLET [Concomitant]

REACTIONS (2)
  - Sinusitis [None]
  - Sinus congestion [None]
